FAERS Safety Report 11984472 (Version 1)
Quarter: 2016Q1

REPORT INFORMATION
  Report Type: Spontaneous
  Country: US (occurrence: US)
  Receive Date: 20160201
  Receipt Date: 20160201
  Transmission Date: 20160526
  Serious: No
  Sender: FDA-Public Use
  Company Number: US-KADMON PHARMACEUTICALS, LLC-KAD201503-000435

PATIENT
  Age: 61 Year
  Sex: Female
  Weight: 65.77 kg

DRUGS (6)
  1. RIBAVIRIN. [Suspect]
     Active Substance: RIBAVIRIN
     Indication: HEPATITIS C
     Dosage: TABLET
     Route: 048
     Dates: start: 20150202
  2. VERAPAMIL [Concomitant]
     Active Substance: VERAPAMIL HYDROCHLORIDE
     Indication: HYPERTENSION
  3. FOSAMAX [Concomitant]
     Active Substance: ALENDRONATE SODIUM
  4. VIEKIRA PAK [Suspect]
     Active Substance: DASABUVIR\OMBITASVIR\PARITAPREVIR\RITONAVIR
     Indication: HEPATITIS C
     Dosage: TABLET
     Route: 048
     Dates: start: 20150202
  5. PREDNISONE. [Concomitant]
     Active Substance: PREDNISONE
     Indication: INFLAMMATION
  6. LISINOPRIL. [Concomitant]
     Active Substance: LISINOPRIL
     Indication: HYPERTENSION

REACTIONS (19)
  - Dyspepsia [Recovered/Resolved]
  - Somnolence [Recovered/Resolved]
  - Nausea [Unknown]
  - Osteoarthritis [Unknown]
  - Asthenopia [Recovered/Resolved]
  - Constipation [Unknown]
  - Anger [Unknown]
  - Headache [Unknown]
  - Memory impairment [Unknown]
  - Crying [Unknown]
  - Hypotension [Unknown]
  - Mental fatigue [Recovered/Resolved]
  - Pruritus [Unknown]
  - Arthralgia [Unknown]
  - Feeling abnormal [Unknown]
  - Haemorrhoids [Unknown]
  - Depression [Unknown]
  - Confusional state [Unknown]
  - Dyspnoea [Unknown]

NARRATIVE: CASE EVENT DATE: 201502
